FAERS Safety Report 9433378 (Version 3)
Quarter: 2013Q3

REPORT INFORMATION
  Report Type: Spontaneous
  Country: US (occurrence: US)
  Receive Date: 20130731
  Receipt Date: 20130910
  Transmission Date: 20140515
  Serious: No
  Sender: FDA-Public Use
  Company Number: US-PFIZER INC-2013219404

PATIENT
  Age: 66 Year
  Sex: Female

DRUGS (8)
  1. AMOXICILLIN [Suspect]
     Dosage: UNK
  2. MORPHINE SULFATE [Suspect]
     Dosage: UNK
  3. ZOLOFT [Suspect]
     Dosage: UNK
  4. ABILIFY [Suspect]
     Dosage: UNK
  5. CODEINE [Suspect]
     Dosage: UNK
  6. DARVON [Suspect]
     Dosage: UNK
  7. ULTRAM [Suspect]
     Dosage: UNK
  8. WELLBUTRIN [Suspect]
     Dosage: UNK

REACTIONS (1)
  - Drug hypersensitivity [Unknown]
